FAERS Safety Report 4569691-9 (Version None)
Quarter: 2005Q1

REPORT INFORMATION
  Report Type: 
  Country: None (occurrence: None)
  Receive Date: 20050201
  Receipt Date: 20050117
  Transmission Date: 20050727
  Serious: Yes (Hospitalization)
  Sender: FDA-Public Use
  Company Number: 9822

PATIENT
  Sex: 0

DRUGS (7)
  1. METHOTREXATE [Suspect]
     Indication: RHEUMATOID ARTHRITIS
     Dosage: 7.5 MG
  2. FENOTEROL HYDROBROMIDE/ IPRATROPIUM BROMIDE [Concomitant]
  3. TRIAZOLAM [Concomitant]
  4. PREDNISONE [Concomitant]
  5. AMITRIPTYLINE [Concomitant]
  6. HYDROCHLOROTHIAZIDE/ VALSARTAN [Concomitant]
  7. CHLOROQUINE SULFATE [Concomitant]

REACTIONS (5)
  - DIARRHOEA [None]
  - GASTRIC ULCER [None]
  - MOUTH ULCERATION [None]
  - SKIN SWELLING [None]
  - VASCULITIS [None]
